FAERS Safety Report 7279928-3 (Version None)
Quarter: 2011Q1

REPORT INFORMATION
  Report Type: 
  Country: None (occurrence: None)
  Receive Date: 20110208
  Receipt Date: 20101216
  Transmission Date: 20110831
  Serious: Yes (Hospitalization)
  Sender: FDA-Public Use
  Company Number: US-BAYER-201027580NA

PATIENT
  Sex: Female

DRUGS (11)
  1. CEPHALEXIN [Concomitant]
     Dosage: 500 MG, UNK
  2. PROMETHAZINE [Concomitant]
     Dosage: 25 MG, UNK
  3. YASMIN [Suspect]
     Indication: CONTRACEPTION
     Dosage: UNK
     Dates: end: 20080707
  4. DIAZEPAM [Concomitant]
     Dosage: 5 MG, UNK
  5. YAZ [Suspect]
     Indication: CONTRACEPTION
     Dosage: UNK UNK, UNK
     Route: 048
     Dates: end: 20080707
  6. POTASSIUM 99 [Concomitant]
     Route: 048
  7. VICODIN [Concomitant]
  8. DOCUSATE [Concomitant]
     Dosage: 100 MG, UNK
  9. CIPROFLOXACIN [Concomitant]
  10. MEPERIDINE HCL [Concomitant]
     Dosage: 50 MG, UNK
  11. ROCEPHIN [Concomitant]
     Route: 042

REACTIONS (2)
  - DEEP VEIN THROMBOSIS [None]
  - PULMONARY EMBOLISM [None]
